FAERS Safety Report 14591981 (Version 2)
Quarter: 2018Q2

REPORT INFORMATION
  Report Type: Spontaneous
  Country: US (occurrence: US)
  Receive Date: 20180302
  Receipt Date: 20180420
  Transmission Date: 20180711
  Serious: Yes (Other)
  Sender: FDA-Public Use
  Company Number: US-SA-2018SA044907

PATIENT
  Age: 50 Year
  Sex: Female

DRUGS (1)
  1. KEVZARA [Suspect]
     Active Substance: SARILUMAB
     Indication: RHEUMATOID ARTHRITIS
     Dosage: TWICE MONTHLY
     Route: 058
     Dates: start: 20180208

REACTIONS (8)
  - Alopecia [Not Recovered/Not Resolved]
  - Fungal infection [Unknown]
  - Injection site swelling [Unknown]
  - Injection site erythema [Unknown]
  - Rheumatoid arthritis [Unknown]
  - Injection site irritation [Unknown]
  - Alopecia [Not Recovered/Not Resolved]
  - Injection site pain [Unknown]

NARRATIVE: CASE EVENT DATE: 2018
